FAERS Safety Report 8912118 (Version 3)
Quarter: 2013Q1

REPORT INFORMATION
  Report Type: Spontaneous
  Country: US (occurrence: None)
  Receive Date: 20121113
  Receipt Date: 20130129
  Transmission Date: 20140127
  Serious: Yes (Hospitalization)
  Sender: FDA-Public Use
  Company Number: 2012-1265

PATIENT
  Age: 53 Year
  Sex: Female

DRUGS (1)
  1. KYPROLIS [Suspect]
     Indication: PRODUCT USED FOR UNKNOWN INDICATION
     Dates: start: 20121017, end: 20121017

REACTIONS (7)
  - Drug interaction [None]
  - Tremor [None]
  - Incoherent [None]
  - Fine motor delay [None]
  - Abasia [None]
  - Body temperature increased [None]
  - Decreased appetite [None]
